FAERS Safety Report 11186992 (Version 3)
Quarter: 2015Q3

REPORT INFORMATION
  Report Type: Spontaneous
  Country: IT (occurrence: IT)
  Receive Date: 20150615
  Receipt Date: 20150714
  Transmission Date: 20151125
  Serious: Yes (Other)
  Sender: FDA-Public Use
  Company Number: IT-ROCHE-1592800

PATIENT
  Age: 68 Year
  Sex: Male
  Weight: 68 kg

DRUGS (2)
  1. COPEGUS [Suspect]
     Active Substance: RIBAVIRIN
     Indication: CHRONIC HEPATITIS C
     Dosage: 168 X 200 MG FILM-COATED TABLETS IN BOTTLE
     Route: 048
     Dates: start: 20150202, end: 20150528
  2. SOVALDI [Suspect]
     Active Substance: SOFOSBUVIR
     Indication: CHRONIC HEPATITIS C
     Dosage: 400 MG BOTTLE (HDPE)  28 TABLETS
     Route: 048
     Dates: start: 20150202, end: 20150528

REACTIONS (1)
  - Pericardial effusion [Unknown]

NARRATIVE: CASE EVENT DATE: 20150528
